FAERS Safety Report 10163511 (Version 1)
Quarter: 2014Q2

REPORT INFORMATION
  Report Type: Spontaneous
  Country: RO (occurrence: RO)
  Receive Date: 20140509
  Receipt Date: 20140509
  Transmission Date: 20141212
  Serious: Yes (Death, Hospitalization, Other)
  Sender: FDA-Public Use
  Company Number: PHHY2014RO054225

PATIENT
  Age: 50 Year
  Sex: Male

DRUGS (13)
  1. VINCRISTINE [Suspect]
     Indication: DIFFUSE LARGE B-CELL LYMPHOMA
     Dosage: 2 MG, UNK
  2. DEXAMETHASONE [Suspect]
     Indication: DIFFUSE LARGE B-CELL LYMPHOMA
     Dosage: 16 MG, UNK
  3. DEXAMETHASONE [Suspect]
     Dosage: 5 DF, UNK
  4. IFOSFAMIDE [Suspect]
     Indication: DIFFUSE LARGE B-CELL LYMPHOMA
     Dosage: 6 G, UNK
  5. MITOXANTRONE [Suspect]
     Indication: DIFFUSE LARGE B-CELL LYMPHOMA
     Dosage: 10 MG, UNK
  6. ETOPOSIDE [Suspect]
     Indication: DIFFUSE LARGE B-CELL LYMPHOMA
     Dosage: 300 MG, UNK
  7. GEMCITABINE [Suspect]
     Indication: DIFFUSE LARGE B-CELL LYMPHOMA
     Dosage: 2000 MG, UNK
  8. CISPLATIN [Suspect]
     Indication: DIFFUSE LARGE B-CELL LYMPHOMA
     Dosage: 75 MG, UNK
  9. MESNA [Suspect]
     Indication: DIFFUSE LARGE B-CELL LYMPHOMA
     Dosage: 3 DF, UNK
  10. ADRIBLASTINE [Suspect]
     Indication: DIFFUSE LARGE B-CELL LYMPHOMA
     Dosage: 90 MG, UNK
  11. CYCLOPHOSPHAMIDE [Suspect]
     Indication: DIFFUSE LARGE B-CELL LYMPHOMA
     Dosage: 1200 MG, UNK
  12. MABTHERA [Suspect]
     Indication: DIFFUSE LARGE B-CELL LYMPHOMA
  13. RADIOTHERAPY [Suspect]
     Indication: DIFFUSE LARGE B-CELL LYMPHOMA
     Dosage: 5000 CGY

REACTIONS (16)
  - Cardiac arrest [Fatal]
  - Diffuse large B-cell lymphoma [Unknown]
  - Dyspnoea [Unknown]
  - Dysphonia [Unknown]
  - Dysphagia [Unknown]
  - Ear pain [Unknown]
  - Neck pain [Unknown]
  - Bradycardia [Unknown]
  - Anxiety [Unknown]
  - Syncope [Unknown]
  - Neoplasm malignant [Unknown]
  - Arterial haemorrhage [Unknown]
  - Drug resistance [Unknown]
  - Staphylococcal infection [Unknown]
  - Candida infection [Unknown]
  - Treatment failure [Unknown]
